FAERS Safety Report 7116133-5 (Version None)
Quarter: 2010Q4

REPORT INFORMATION
  Report Type: 
  Country: None (occurrence: None)
  Receive Date: 20101115
  Receipt Date: 20101108
  Transmission Date: 20110411
  Serious: Yes (Death, Life-Threatening, Hospitalization, Other)
  Sender: FDA-Public Use
  Company Number: 2010AC000183

PATIENT
  Age: 62 Year
  Sex: Female

DRUGS (17)
  1. DIGOXIN [Suspect]
     Dosage: 0.125 MG; PO
     Route: 048
     Dates: start: 20060614, end: 20080101
  2. COUMADIN [Concomitant]
  3. VITAMIN K TAB [Concomitant]
  4. LASIX [Concomitant]
  5. BLOOD TRANSFUSION [Concomitant]
  6. HEPARIN [Concomitant]
  7. OXACILLIN [Concomitant]
  8. MORPHINE [Concomitant]
  9. LORAZEPAM [Concomitant]
  10. LEVSIN [Concomitant]
  11. HALDOL [Concomitant]
  12. SODIUM PHOSPHATES [Concomitant]
  13. ALBUTEROL NEBULIZER TREATMENT [Concomitant]
  14. ENALAPRIL [Concomitant]
  15. KEPPRA [Concomitant]
  16. PRILOSEC [Concomitant]
  17. OXYGEN [Concomitant]

REACTIONS (52)
  - ANAEMIA [None]
  - AORTIC VALVE CALCIFICATION [None]
  - AORTIC VALVE SCLEROSIS [None]
  - ASTHENIA [None]
  - ATRIAL FIBRILLATION [None]
  - BLOOD CULTURE POSITIVE [None]
  - BRAIN NATRIURETIC PEPTIDE INCREASED [None]
  - BUNDLE BRANCH BLOCK LEFT [None]
  - CARDIAC FAILURE [None]
  - CARDIAC FAILURE CONGESTIVE [None]
  - CARDIAC MURMUR [None]
  - CARDIOMEGALY [None]
  - CHRONIC OBSTRUCTIVE PULMONARY DISEASE [None]
  - CONFUSIONAL STATE [None]
  - DEHYDRATION [None]
  - DIZZINESS [None]
  - DRUG LEVEL BELOW THERAPEUTIC [None]
  - DYSPNOEA [None]
  - EJECTION FRACTION DECREASED [None]
  - GLUCOSE URINE PRESENT [None]
  - HEADACHE [None]
  - HYPERTENSION [None]
  - HYPOKALAEMIA [None]
  - HYPOXIA [None]
  - INFARCTION [None]
  - INTERNATIONAL NORMALISED RATIO INCREASED [None]
  - ISCHAEMIC CARDIOMYOPATHY [None]
  - LEFT ATRIAL DILATATION [None]
  - LEFT VENTRICULAR DYSFUNCTION [None]
  - LEUKOCYTOSIS [None]
  - LOSS OF CONSCIOUSNESS [None]
  - MALAISE [None]
  - MITRAL VALVE CALCIFICATION [None]
  - MITRAL VALVE DISEASE MIXED [None]
  - NAUSEA [None]
  - PAIN IN EXTREMITY [None]
  - PALLOR [None]
  - PNEUMONIA [None]
  - PULMONARY HYPERTENSION [None]
  - PULMONARY OEDEMA [None]
  - PULMONARY VALVE INCOMPETENCE [None]
  - RALES [None]
  - RENAL FAILURE [None]
  - RESPIRATORY FAILURE [None]
  - STAPHYLOCOCCAL INFECTION [None]
  - SUBARACHNOID HAEMORRHAGE [None]
  - SUBDURAL HAEMATOMA [None]
  - THROMBOCYTOPENIA [None]
  - TRICUSPID VALVE INCOMPETENCE [None]
  - URINARY TRACT INFECTION [None]
  - VENTRICULAR TACHYCARDIA [None]
  - WHEEZING [None]
